FAERS Safety Report 12199091 (Version 1)
Quarter: 2016Q1

REPORT INFORMATION
  Report Type: Spontaneous
  Country: US (occurrence: US)
  Receive Date: 20160322
  Receipt Date: 20160322
  Transmission Date: 20160526
  Serious: Yes (Hospitalization, Other)
  Sender: FDA-Public Use
  Company Number: US-SUN PHARMACEUTICAL INDUSTRIES LTD-2016US-113468

PATIENT
  Age: 37 Year
  Sex: Male

DRUGS (2)
  1. CLOZAPINE. [Suspect]
     Active Substance: CLOZAPINE
     Indication: PRODUCT USED FOR UNKNOWN INDICATION
     Route: 048
  2. METHADONE [Suspect]
     Active Substance: METHADONE HYDROCHLORIDE
     Indication: PRODUCT USED FOR UNKNOWN INDICATION
     Route: 065

REACTIONS (11)
  - Miosis [Unknown]
  - Pyrexia [Unknown]
  - Substance abuse [Unknown]
  - Gastrointestinal hypomotility [Unknown]
  - Electrocardiogram QT prolonged [Unknown]
  - Dry skin [Unknown]
  - Delirium [Unknown]
  - Respiratory failure [Unknown]
  - Coma [Recovering/Resolving]
  - Overdose [Unknown]
  - Tachycardia [Recovering/Resolving]
